FAERS Safety Report 4606838-X (Version None)
Quarter: 2005Q1

REPORT INFORMATION
  Report Type: 
  Country: None (occurrence: None)
  Receive Date: 20050310
  Receipt Date: 20050228
  Transmission Date: 20050727
  Serious: Yes (Hospitalization)
  Sender: FDA-Public Use
  Company Number: 29781

PATIENT
  Age: 47 Year
  Sex: Female
  Weight: 52.6173 kg

DRUGS (8)
  1. VIGAMOX [Suspect]
     Indication: PROPHYLAXIS
  2. PREMARIN [Concomitant]
  3. TOPAMAX [Concomitant]
  4. TOPROL-XL [Concomitant]
  5. VALIUM [Concomitant]
  6. VICODIN [Concomitant]
  7. NEXIUM [Concomitant]
  8. MULTI-VITAMIN [Concomitant]

REACTIONS (1)
  - OESOPHAGEAL CANDIDIASIS [None]
